FAERS Safety Report 12412898 (Version 3)
Quarter: 2016Q2

REPORT INFORMATION
  Report Type: Spontaneous
  Country: US (occurrence: US)
  Receive Date: 20160527
  Receipt Date: 20160628
  Transmission Date: 20160815
  Serious: No
  Sender: FDA-Public Use
  Company Number: US-PFIZER INC-3272373

PATIENT

DRUGS (1)
  1. CALCIUM CHLORIDE. [Suspect]
     Active Substance: CALCIUM CHLORIDE
     Dosage: UNK

REACTIONS (3)
  - Accidental exposure to product [Recovered/Resolved]
  - Occupational exposure to product [Recovered/Resolved]
  - Syringe issue [Recovered/Resolved]
